FAERS Safety Report 16930947 (Version 1)
Quarter: 2019Q4

REPORT INFORMATION
  Report Type: Spontaneous
  Country: GB (occurrence: GB)
  Receive Date: 20191017
  Receipt Date: 20191017
  Transmission Date: 20200122
  Serious: Yes (Other)
  Sender: FDA-Public Use
  Company Number: GB-MYLANLABS-2019M1097713

PATIENT
  Age: 59 Year
  Sex: Female
  Weight: 47.5 kg

DRUGS (2)
  1. LETROZOLE ACCORD HEALTHCARE [Concomitant]
     Active Substance: LETROZOLE
     Dosage: UNK
  2. IBANDRONATE [Suspect]
     Active Substance: IBANDRONATE SODIUM
     Indication: BREAST CANCER
     Dosage: 50 MILLIGRAM
     Route: 048
     Dates: start: 20190205

REACTIONS (2)
  - Cataract [Recovered/Resolved]
  - Blindness unilateral [Recovered/Resolved with Sequelae]

NARRATIVE: CASE EVENT DATE: 20190619
